FAERS Safety Report 5844977-6 (Version None)
Quarter: 2008Q3

REPORT INFORMATION
  Report Type: 
  Country: None (occurrence: None)
  Receive Date: 20080813
  Receipt Date: 20080813
  Transmission Date: 20090109
  Serious: Yes (Other)
  Sender: FDA-Public Use
  Company Number: None

PATIENT
  Age: 63 Year
  Sex: Male
  Weight: 77.1115 kg

DRUGS (2)
  1. AVODART [Suspect]
     Indication: LOCAL SWELLING
     Dosage: ONCE DAILY
     Dates: start: 20080521, end: 20080802
  2. AVODART [Suspect]
     Indication: SWELLING FACE
     Dosage: ONCE DAILY
     Dates: start: 20080521, end: 20080802

REACTIONS (3)
  - ABSCESS [None]
  - CONDITION AGGRAVATED [None]
  - SWELLING [None]
